FAERS Safety Report 24356273 (Version 1)
Quarter: 2024Q3

REPORT INFORMATION
  Report Type: Spontaneous
  Country: MY (occurrence: MY)
  Receive Date: 20240924
  Receipt Date: 20240924
  Transmission Date: 20241017
  Serious: Yes (Hospitalization, Other)
  Sender: RANBAXY
  Company Number: MY-SUN PHARMACEUTICAL INDUSTRIES LTD-2024R1-468270

PATIENT
  Age: 9 Year

DRUGS (2)
  1. CHLORPHENIRAMINE [Suspect]
     Active Substance: CHLORPHENIRAMINE
     Indication: Asthenia
     Dosage: 0.1 MILLIGRAM/KILOGRAM/DOSE
     Route: 048
  2. ACETAMINOPHEN [Suspect]
     Active Substance: ACETAMINOPHEN
     Indication: Pain
     Dosage: 15 MILLIGRAM/KILOGRAM/DOSE
     Route: 048

REACTIONS (1)
  - Condition aggravated [Unknown]
